FAERS Safety Report 4694764-X (Version None)
Quarter: 2005Q2

REPORT INFORMATION
  Report Type: 
  Country: None (occurrence: None)
  Receive Date: 20050620
  Receipt Date: 20050608
  Transmission Date: 20051028
  Serious: Yes (Hospitalization)
  Sender: FDA-Public Use
  Company Number: GR-BRISTOL-MYERS SQUIBB COMPANY-12997656

PATIENT
  Age: 68 Year
  Sex: Female

DRUGS (1)
  1. PROCEF TABS [Suspect]
     Indication: GENITOURINARY TRACT INFECTION
     Route: 048

REACTIONS (4)
  - BLOOD PRESSURE DECREASED [None]
  - DIZZINESS [None]
  - DYSPNOEA [None]
  - LOSS OF CONSCIOUSNESS [None]
